FAERS Safety Report 15371479 (Version 3)
Quarter: 2018Q3

REPORT INFORMATION
  Report Type: Spontaneous
  Country: US (occurrence: US)
  Receive Date: 20180911
  Receipt Date: 20180924
  Transmission Date: 20181010
  Serious: Yes (Hospitalization, Other)
  Sender: FDA-Public Use
  Company Number: US-ASTRAZENECA-2014SE32614

PATIENT
  Age: 69 Year
  Sex: Male
  Weight: 93.4 kg

DRUGS (14)
  1. ATACAND [Suspect]
     Active Substance: CANDESARTAN CILEXETIL
     Indication: HYPERTENSION
     Route: 048
  2. BYETTA [Suspect]
     Active Substance: EXENATIDE
     Indication: TYPE 2 DIABETES MELLITUS
     Route: 058
     Dates: start: 2009
  3. EXENATIDE. [Concomitant]
     Active Substance: EXENATIDE
     Dosage: 10MCG PEN, DISPOSABLE DEVICE
  4. ASPIRIN. [Concomitant]
     Active Substance: ASPIRIN
     Indication: ANTICOAGULANT THERAPY
     Route: 048
  5. METFORMIN [Concomitant]
     Active Substance: METFORMIN HYDROCHLORIDE
     Indication: DIABETES MELLITUS
     Route: 048
  6. LIPITOR [Concomitant]
     Active Substance: ATORVASTATIN CALCIUM
     Indication: BLOOD CHOLESTEROL
     Route: 048
  7. GABAPENTIN. [Concomitant]
     Active Substance: GABAPENTIN
     Indication: ANXIETY
     Route: 048
  8. GABAPENTIN. [Concomitant]
     Active Substance: GABAPENTIN
     Indication: PROPHYLAXIS
     Route: 048
  9. OMEPRAZOLE. [Suspect]
     Active Substance: OMEPRAZOLE
     Indication: GASTROOESOPHAGEAL REFLUX DISEASE
     Route: 048
  10. KLONOPIN [Concomitant]
     Active Substance: CLONAZEPAM
     Indication: ANXIETY
     Dosage: 0.5 MG PRN/DAILY
     Route: 048
  11. PAXIL [Concomitant]
     Active Substance: PAROXETINE HYDROCHLORIDE
     Indication: ANXIETY
     Route: 048
  12. EXENATIDE. [Concomitant]
     Active Substance: EXENATIDE
     Dosage: 5MCG PEN, DISPOSABLE DEVICE
  13. BYDUREON [Suspect]
     Active Substance: EXENATIDE
     Indication: TYPE 2 DIABETES MELLITUS
     Route: 058
     Dates: start: 20180517
  14. NORVASC [Concomitant]
     Active Substance: AMLODIPINE BESYLATE
     Indication: BLOOD PRESSURE MEASUREMENT
     Route: 048

REACTIONS (22)
  - Blood cholesterol increased [Unknown]
  - Body height decreased [Unknown]
  - Diabetes mellitus [Unknown]
  - Product use issue [Unknown]
  - Underdose [Unknown]
  - Silent myocardial infarction [Unknown]
  - Rhinorrhoea [Unknown]
  - Seasonal allergy [Unknown]
  - Headache [Unknown]
  - Nausea [Unknown]
  - Malaise [Not Recovered/Not Resolved]
  - Chronic lymphocytic leukaemia [Unknown]
  - Injection site bruising [Unknown]
  - Lacrimation increased [Unknown]
  - Injection site mass [Not Recovered/Not Resolved]
  - Injection site extravasation [Unknown]
  - Coronary artery occlusion [Unknown]
  - Meniscal degeneration [Unknown]
  - Injection site pain [Not Recovered/Not Resolved]
  - Visual impairment [Not Recovered/Not Resolved]
  - Anxiety disorder [Unknown]
  - Cough [Unknown]

NARRATIVE: CASE EVENT DATE: 2009
